FAERS Safety Report 6197738-5 (Version None)
Quarter: 2009Q2

REPORT INFORMATION
  Report Type: 
  Country: None (occurrence: None)
  Receive Date: 20090521
  Receipt Date: 20090511
  Transmission Date: 20091009
  Serious: Yes (Other)
  Sender: FDA-Public Use
  Company Number: US-ELI_LILLY_AND_COMPANY-US200905002087

PATIENT
  Age: 16 Year
  Sex: Female

DRUGS (2)
  1. PROZAC [Suspect]
     Indication: CONVULSION
     Dosage: 20 MG, 2/D
     Route: 065
     Dates: start: 20000101, end: 20090401
  2. PROZAC [Suspect]
     Dosage: 20 MG, 2/D
     Route: 065
     Dates: start: 20090401

REACTIONS (3)
  - CONVULSION [None]
  - GRAND MAL CONVULSION [None]
  - PARTIAL SEIZURES [None]
